FAERS Safety Report 7087151-0 (Version None)
Quarter: 2010Q4

REPORT INFORMATION
  Report Type: 
  Country: None (occurrence: None)
  Receive Date: 20101106
  Receipt Date: 20101102
  Transmission Date: 20110411
  Serious: No
  Sender: FDA-Public Use
  Company Number: US-WYE-H18527610

PATIENT
  Age: 22 Year
  Sex: Female
  Weight: 59.02 kg

DRUGS (1)
  1. EFFEXOR [Suspect]
     Indication: DEPRESSION
     Route: 048

REACTIONS (2)
  - CONFUSIONAL STATE [None]
  - PARAESTHESIA [None]
